FAERS Safety Report 22599718 (Version 1)
Quarter: 2023Q2

REPORT INFORMATION
  Report Type: Spontaneous
  Country: US (occurrence: None)
  Receive Date: 20230613
  Receipt Date: 20230613
  Transmission Date: 20230722
  Serious: Yes (Hospitalization)
  Sender: FDA-Public Use
  Company Number: None

PATIENT
  Age: 30 Year
  Sex: Male

DRUGS (4)
  1. CLOZARIL [Suspect]
     Active Substance: CLOZAPINE
  2. LITHIUM [Concomitant]
     Active Substance: LITHIUM
  3. NAPROXEN [Concomitant]
     Active Substance: NAPROXEN
  4. LORAZEPAM [Concomitant]
     Active Substance: LORAZEPAM

REACTIONS (6)
  - Limb operation [None]
  - Psychotic disorder [None]
  - Product availability issue [None]
  - Product dose omission issue [None]
  - Road traffic accident [None]
  - Therapy interrupted [None]

NARRATIVE: CASE EVENT DATE: 20230602
